FAERS Safety Report 15269888 (Version 2)
Quarter: 2024Q1

REPORT INFORMATION
  Report Type: Spontaneous
  Country: US (occurrence: US)
  Receive Date: 20180813
  Receipt Date: 20240129
  Transmission Date: 20240410
  Serious: Yes (Other)
  Sender: FDA-Public Use
  Company Number: US-MYLANLABS-2018M1060436

PATIENT
  Age: 64 Year
  Sex: Female

DRUGS (5)
  1. CLOBETASOL PROPIONATE [Interacting]
     Active Substance: CLOBETASOL PROPIONATE
     Indication: Eczema
     Dosage: UNK
     Route: 061
  2. ECONAZOLE [Interacting]
     Active Substance: ECONAZOLE
     Indication: Eczema
     Dosage: UNK
     Route: 061
  3. KETOCONAZOLE [Interacting]
     Active Substance: KETOCONAZOLE
     Indication: Eczema
     Dosage: UNK
     Route: 061
  4. FLUOCINONIDE [Interacting]
     Active Substance: FLUOCINONIDE
     Indication: Eczema
     Dosage: UNK
     Route: 061
  5. TRIAMCINOLONE [Suspect]
     Active Substance: TRIAMCINOLONE
     Indication: Eczema
     Dosage: UNK
     Route: 061

REACTIONS (4)
  - Adrenal insufficiency [Recovering/Resolving]
  - Withdrawal syndrome [Recovering/Resolving]
  - Hypothalamic pituitary adrenal axis suppression [Recovering/Resolving]
  - Drug interaction [Recovering/Resolving]
